FAERS Safety Report 5599810-7 (Version None)
Quarter: 2008Q1

REPORT INFORMATION
  Report Type: 
  Country: None (occurrence: None)
  Receive Date: 20080118
  Receipt Date: 20080118
  Transmission Date: 20080703
  Serious: Yes (Life-Threatening, Disabling)
  Sender: FDA-Public Use
  Company Number: None

PATIENT
  Age: 48 Year
  Sex: Female
  Weight: 95.2554 kg

DRUGS (4)
  1. VIOXX [Suspect]
     Indication: ARTHRALGIA
     Dosage: 25MGS  DAILY  PO
     Route: 048
     Dates: start: 20010410, end: 20041021
  2. VIOXX [Suspect]
     Indication: ARTHRITIS
     Dosage: 25MGS  DAILY  PO
     Route: 048
     Dates: start: 20010410, end: 20041021
  3. VIOXX [Suspect]
     Indication: PAIN
     Dosage: 25MGS  DAILY  PO
     Route: 048
     Dates: start: 20010410, end: 20041021
  4. VIOXX [Suspect]
     Indication: PAIN IN EXTREMITY
     Dosage: 25MGS  DAILY  PO
     Route: 048
     Dates: start: 20010410, end: 20041021

REACTIONS (1)
  - MYOCARDIAL INFARCTION [None]
